FAERS Safety Report 13808459 (Version 4)
Quarter: 2018Q3

REPORT INFORMATION
  Report Type: Report from Study
  Country: US (occurrence: US)
  Receive Date: 20170728
  Receipt Date: 20180719
  Transmission Date: 20181010
  Serious: No
  Sender: FDA-Public Use
  Company Number: US-AMGEN-USASL2017060370

PATIENT
  Age: 61 Year
  Sex: Female

DRUGS (4)
  1. REPATHA [Suspect]
     Active Substance: EVOLOCUMAB
     Indication: ARTERIOSCLEROSIS CORONARY ARTERY
     Dosage: 140 MG, Q2WK
     Route: 065
     Dates: start: 201611, end: 2017
  2. REPATHA [Suspect]
     Active Substance: EVOLOCUMAB
     Indication: HYPERCHOLESTEROLAEMIA
  3. TRULICITY [Concomitant]
     Active Substance: DULAGLUTIDE
  4. REPATHA [Suspect]
     Active Substance: EVOLOCUMAB
     Indication: CARDIOVASCULAR DISORDER

REACTIONS (15)
  - Abdominal discomfort [Recovered/Resolved]
  - Irritable bowel syndrome [Unknown]
  - Therapeutic response unexpected [Unknown]
  - Dizziness [Unknown]
  - Memory impairment [Unknown]
  - Anxiety [Unknown]
  - Feeling abnormal [Unknown]
  - Dyspepsia [Unknown]
  - Headache [Unknown]
  - Asthenia [Unknown]
  - Grip strength decreased [Unknown]
  - Malaise [Unknown]
  - Pyrexia [Recovered/Resolved]
  - Chest pain [Unknown]
  - Somnolence [Unknown]

NARRATIVE: CASE EVENT DATE: 2017
